FAERS Safety Report 9555421 (Version 2)
Quarter: 2014Q1

REPORT INFORMATION
  Report Type: Spontaneous
  Country: FR (occurrence: FR)
  Receive Date: 20130926
  Receipt Date: 20140203
  Transmission Date: 20141002
  Serious: Yes (Other)
  Sender: FDA-Public Use
  Company Number: FR-JNJFOC-20130910342

PATIENT
  Age: 28 Year
  Sex: Male

DRUGS (6)
  1. XEPLION [Suspect]
     Indication: PRODUCT USED FOR UNKNOWN INDICATION
     Route: 030
     Dates: start: 20130228
  2. LOXAPAC [Suspect]
     Indication: PRODUCT USED FOR UNKNOWN INDICATION
     Route: 048
     Dates: start: 20130613
  3. BACLOFEN [Suspect]
     Indication: PRODUCT USED FOR UNKNOWN INDICATION
     Dosage: 20-10-20 MG
     Route: 048
     Dates: start: 20130613
  4. DEPAKOTE [Suspect]
     Indication: PRODUCT USED FOR UNKNOWN INDICATION
     Dosage: 20-10-20 MG; 1 DOSE TWICE A DAY
     Route: 048
     Dates: start: 20130117
  5. AUGMENTIN [Concomitant]
     Dosage: 1 DOSE 3 TIMES ONCE A DAY
     Route: 048
     Dates: start: 20130814, end: 20130824
  6. FLAGYL [Concomitant]
     Dosage: 1 DOSE 3 TIMES ONCE A DAY
     Route: 048
     Dates: start: 20130813, end: 20130823

REACTIONS (2)
  - Deep vein thrombosis [Recovered/Resolved]
  - Inappropriate schedule of drug administration [Not Recovered/Not Resolved]
